FAERS Safety Report 4265815-1 (Version None)
Quarter: 2004Q1

REPORT INFORMATION
  Report Type: 
  Country: None (occurrence: None)
  Receive Date: 20040106
  Receipt Date: 20031224
  Transmission Date: 20041129
  Serious: Yes (Other)
  Sender: FDA-Public Use
  Company Number: US-JNJFOC-20031205334

PATIENT
  Age: 73 Year
  Sex: Male

DRUGS (9)
  1. INFLIXIMAB (INFLIXIMAB, RECOMBINANT) LYOPHILIZED POWDER [Suspect]
     Indication: RHEUMATOID ARTHRITIS
     Dosage: INTRAVENOUS
     Route: 042
     Dates: start: 20021220
  2. MOBIC [Concomitant]
  3. ACTONEL [Concomitant]
  4. METFORMIN HCL [Concomitant]
  5. DYAZIDE [Concomitant]
  6. PROPOXYPHENE/APAP (PROPACET) [Concomitant]
  7. CALCIUM D (CALCIUM WITH VITAMIN D) [Concomitant]
  8. TTYLENOL ARTHRITIS (PARACETAMOL) [Concomitant]
  9. TYLENOL PM (TYLENOL PM) [Concomitant]

REACTIONS (1)
  - MALIGNANT MELANOMA [None]
